FAERS Safety Report 5224167-0 (Version None)
Quarter: 2007Q1

REPORT INFORMATION
  Report Type: 
  Country: None (occurrence: None)
  Receive Date: 20070126
  Receipt Date: 20070112
  Transmission Date: 20070707
  Serious: Yes (Hospitalization)
  Sender: FDA-Public Use
  Company Number: 200701IM000020

PATIENT
  Sex: Male

DRUGS (1)
  1. ACTIMMUNE [Suspect]
     Dosage: 0.2 MG/DL, SUBCUTANEOUS
     Route: 058

REACTIONS (5)
  - FEELING COLD [None]
  - INFLUENZA [None]
  - RESPIRATORY RATE INCREASED [None]
  - TREMOR [None]
  - VOMITING [None]
